FAERS Safety Report 5338342-8 (Version None)
Quarter: 2007Q2

REPORT INFORMATION
  Report Type: 
  Country: None (occurrence: None)
  Receive Date: 20070328
  Receipt Date: 20070315
  Transmission Date: 20071010
  Serious: Yes (Other)
  Sender: FDA-Public Use
  Company Number: 35240

PATIENT
  Age: 71 Year
  Sex: Male

DRUGS (1)
  1. ADENOSINE [Suspect]
     Indication: SUPRAVENTRICULAR TACHYCARDIA
     Dosage: 6MG/IV
     Route: 042
     Dates: start: 20070315

REACTIONS (1)
  - EXTRAVASATION [None]
